FAERS Safety Report 9072551 (Version 1)
Quarter: 2013Q1

REPORT INFORMATION
  Report Type: Report from Study
  Country: US (occurrence: US)
  Receive Date: 20130128
  Receipt Date: 20130128
  Transmission Date: 20140127
  Serious: No
  Sender: FDA-Public Use
  Company Number: US-ABBOTT-12P-163-0917618-00

PATIENT
  Sex: Female

DRUGS (2)
  1. HUMIRA 40 MG/0.8 ML PEN [Suspect]
     Indication: COLITIS ULCERATIVE
  2. HUMIRA 40 MG/0.8 ML PEN [Suspect]
     Dosage: 2 EA 40MG/0.8ML
     Dates: start: 20111201

REACTIONS (1)
  - Drug effect decreased [Unknown]
